FAERS Safety Report 21555682 (Version 1)
Quarter: 2022Q4

REPORT INFORMATION
  Report Type: Report from Study
  Country: DE (occurrence: DE)
  Receive Date: 20221104
  Receipt Date: 20221104
  Transmission Date: 20230113
  Serious: Yes (Death, Hospitalization)
  Sender: FDA-Public Use
  Company Number: DE-EMA-DD-20221019-116003-075236

PATIENT
  Sex: Female

DRUGS (9)
  1. LEFLUNOMIDE [Suspect]
     Active Substance: LEFLUNOMIDE
     Indication: Rheumatoid arthritis
     Dosage: UNIT DOSE : 10 MILLIGRAM (START DATE: 19-FEB-2019) , THERAPY END DATE : ASKU
     Dates: start: 20190219
  2. METHOTREXATE [Suspect]
     Active Substance: METHOTREXATE
     Indication: Rheumatoid arthritis
     Dosage: UNIT DOSE : 20 MILLIGRAM ,  THERAPY END DATE : ASKU
     Dates: start: 20190219
  3. METHOTREXATE [Suspect]
     Active Substance: METHOTREXATE
     Dosage: UNIT DOSE :  15 MILLIGRAM  ,  THERAPY END DATE : ASKU
     Dates: start: 20170613
  4. METHOTREXATE [Suspect]
     Active Substance: METHOTREXATE
     Dosage: UNIT DOSE : 20 MILLIGRAM ,   THERAPY END DATE : ASKU
     Dates: start: 20180828
  5. METHOTREXATE [Suspect]
     Active Substance: METHOTREXATE
     Dosage: UNIT DOSE : 15 MILLIGRAM , THERAPY END DATE : ASKU
     Dates: start: 20180319
  6. METHOTREXATE [Suspect]
     Active Substance: METHOTREXATE
     Dosage: UNIT DOSE : 15 MILLIGRAM , THERAPY END DATE : ASKU
     Dates: start: 20170919
  7. METHOTREXATE [Suspect]
     Active Substance: METHOTREXATE
     Dosage: UNIT DOSE : 15 MILLIGRAM , THERAPY END DATE : ASKU
     Dates: start: 20170314
  8. SULFASALAZINE [Suspect]
     Active Substance: SULFASALAZINE
     Indication: Rheumatoid arthritis
     Dosage: UNIT DOSE : 2000 MILLIGRAM ,  THERAPY END DATE : ASKU
     Dates: start: 20170314
  9. SULFASALAZINE [Suspect]
     Active Substance: SULFASALAZINE
     Dosage: UNIT DOSE : 2000 MILLIGRAM ,  THERAPY END DATE : ASKU
     Dates: start: 20170613

REACTIONS (3)
  - Hypertensive crisis [Recovered/Resolved]
  - Death [Fatal]
  - Nausea [Unknown]

NARRATIVE: CASE EVENT DATE: 20170428
